FAERS Safety Report 8834426 (Version 1)
Quarter: 2012Q4

REPORT INFORMATION
  Report Type: 
  Country: US (occurrence: US)
  Receive Date: 20121010
  Receipt Date: 20121010
  Transmission Date: 20130627
  Serious: Yes (Other)
  Sender: FDA-Public Use
  Company Number: US-ASTRAZENECA-2012SE75929

PATIENT
  Age: 49 Year
  Sex: Female

DRUGS (1)
  1. SEROQUEL XR [Suspect]
     Route: 048

REACTIONS (4)
  - Suicidal ideation [Unknown]
  - Insomnia [Unknown]
  - Drug withdrawal syndrome [Unknown]
  - Drug dose omission [Unknown]
